FAERS Safety Report 8838614 (Version 2)
Quarter: 2013Q2

REPORT INFORMATION
  Report Type: Spontaneous
  Country: US (occurrence: US)
  Receive Date: 20121012
  Receipt Date: 20130425
  Transmission Date: 20140414
  Serious: Yes (Disabling)
  Sender: FDA-Public Use
  Company Number: US-009507513-1210USA004771

PATIENT
  Age: 9 Year
  Sex: Male
  Weight: 36.74 kg

DRUGS (2)
  1. SINGULAIR [Suspect]
     Indication: ASTHMA
     Dosage: 5 MG, QPM
     Route: 048
     Dates: start: 20120810, end: 201210
  2. ALBUTEROL SULFATE [Concomitant]
     Dosage: UNK, PRN
     Route: 055

REACTIONS (1)
  - Obsessive-compulsive disorder [Recovering/Resolving]
